FAERS Safety Report 11059654 (Version 1)
Quarter: 2015Q2

REPORT INFORMATION
  Report Type: Report from Study
  Country: US (occurrence: US)
  Receive Date: 20150423
  Receipt Date: 20150423
  Transmission Date: 20150821
  Serious: Yes (Hospitalization, Other)
  Sender: FDA-Public Use
  Company Number: US-BAYER-2015-008225

PATIENT
  Age: 58 Year
  Sex: Female
  Weight: 62.59 kg

DRUGS (8)
  1. MIRALAX [Concomitant]
     Active Substance: POLYETHYLENE GLYCOL 3350
     Dosage: UNK
  2. OXYCONTIN [Concomitant]
     Active Substance: OXYCODONE HYDROCHLORIDE
     Dosage: UNK
  3. VIRACEPT [Concomitant]
     Active Substance: NELFINAVIR MESYLATE
  4. OXYCODONE [Concomitant]
     Active Substance: OXYCODONE
  5. TUMS [Concomitant]
     Active Substance: CALCIUM CARBONATE
  6. NEXAVAR [Suspect]
     Active Substance: SORAFENIB
     Indication: HEPATIC CANCER
     Dosage: 400 MG, BID
     Route: 048
     Dates: start: 20150114, end: 20150408
  7. TRIZIVIR [Concomitant]
     Active Substance: ABACAVIR SULFATE\LAMIVUDINE\ZIDOVUDINE
  8. SENOKOT [SENNA ALEXANDRINA] [Concomitant]
     Dosage: UNK

REACTIONS (26)
  - Haemorrhage [None]
  - Back pain [None]
  - Chills [None]
  - Dry skin [None]
  - Headache [None]
  - Pyrexia [None]
  - Abdominal pain upper [None]
  - Food poisoning [None]
  - Sinusitis [None]
  - Abdominal discomfort [None]
  - Skin disorder [None]
  - Abdominal pain upper [None]
  - Weight decreased [None]
  - Hepatic cancer [None]
  - Pain [None]
  - Drug dose omission [None]
  - Vomiting [None]
  - Blood sodium decreased [None]
  - Incorrect dose administered [None]
  - Back pain [None]
  - Alopecia [None]
  - Dehydration [None]
  - Epistaxis [None]
  - Nausea [None]
  - Rash [None]
  - Fatigue [Not Recovered/Not Resolved]

NARRATIVE: CASE EVENT DATE: 2015
